FAERS Safety Report 9885819 (Version 1)
Quarter: 2014Q1

REPORT INFORMATION
  Report Type: Spontaneous
  Country: US (occurrence: None)
  Receive Date: 20140207
  Receipt Date: 20140207
  Transmission Date: 20141002
  Serious: No
  Sender: FDA-Public Use
  Company Number: None

PATIENT
  Age: 24 Year
  Sex: Female

DRUGS (1)
  1. MAKENA [Suspect]
     Route: 030

REACTIONS (4)
  - Injection site erythema [None]
  - Feeling hot [None]
  - Injection site pruritus [None]
  - Injection site swelling [None]
